FAERS Safety Report 25898760 (Version 2)
Quarter: 2025Q4

REPORT INFORMATION
  Report Type: Spontaneous
  Country: US (occurrence: US)
  Receive Date: 20251009
  Receipt Date: 20251014
  Transmission Date: 20260117
  Serious: No
  Sender: AXSOME THERAPEUTICS
  Company Number: US-AXS-AXS202509-001639

PATIENT
  Sex: Male

DRUGS (2)
  1. AUVELITY [Suspect]
     Active Substance: BUPROPION HYDROCHLORIDE\DEXTROMETHORPHAN HYDROBROMIDE
     Indication: Adjustment disorder with depressed mood
     Dosage: 21 DAYS AGO
     Route: 050
     Dates: start: 20250829
  2. XYZAL [Concomitant]
     Active Substance: LEVOCETIRIZINE DIHYDROCHLORIDE
     Indication: Seasonal allergy
     Route: 050

REACTIONS (2)
  - Emotional distress [Recovered/Resolved]
  - Crying [Recovered/Resolved]

NARRATIVE: CASE EVENT DATE: 20250904
